FAERS Safety Report 8554034-6 (Version None)
Quarter: 2012Q3

REPORT INFORMATION
  Report Type: 
  Country: None (occurrence: None)
  Receive Date: 20120731
  Receipt Date: 20120716
  Transmission Date: 20120928
  Serious: No
  Sender: FDA-Public Use
  Company Number: US-ASTRAZENECA-2011SE20263

PATIENT
  Age: 64 Year
  Sex: Female
  Weight: 70.3 kg

DRUGS (20)
  1. SEROQUEL [Suspect]
     Route: 048
  2. MULTI-VITAMIN [Concomitant]
  3. SAVELLA [Concomitant]
  4. SEROQUEL [Suspect]
     Route: 048
  5. FLEXERIL [Concomitant]
  6. CARDURA [Concomitant]
  7. GLUCOSAMINE [Concomitant]
  8. FISH OIL [Concomitant]
  9. CALCIUM [Concomitant]
  10. CELEBREX [Concomitant]
  11. VITAMIN B COMPLEX CAP [Concomitant]
  12. PERCOCET [Concomitant]
     Indication: PAIN
  13. LIPITOR [Concomitant]
  14. SYNTHROID [Concomitant]
  15. SABELLA [Concomitant]
  16. MACRODANTIN [Concomitant]
  17. SEROQUEL [Suspect]
     Indication: SLEEP DISORDER
     Route: 048
  18. XANAX [Concomitant]
     Indication: SLEEP DISORDER
  19. OXYCONTIN [Concomitant]
  20. OXYCODONE HCL AND ACETAMINOPHEN [Concomitant]

REACTIONS (5)
  - INSOMNIA [None]
  - OFF LABEL USE [None]
  - WEIGHT INCREASED [None]
  - DRUG DOSE OMISSION [None]
  - INTENTIONAL DRUG MISUSE [None]
